FAERS Safety Report 16341517 (Version 1)
Quarter: 2019Q2

REPORT INFORMATION
  Report Type: Spontaneous
  Country: GB (occurrence: GB)
  Receive Date: 20190522
  Receipt Date: 20190522
  Transmission Date: 20190711
  Serious: Yes (Disabling)
  Sender: FDA-Public Use
  Company Number: GB-AUROBINDO-AUR-APL-2019-028692

PATIENT

DRUGS (1)
  1. AMOXICILLIN+CLAVULANIC ACID FILM-COATED TABLETS [Suspect]
     Active Substance: AMOXICILLIN\CLAVULANIC ACID
     Indication: SURGERY
     Dosage: 500MG/125MG
     Route: 048
     Dates: start: 20190411, end: 20190413

REACTIONS (4)
  - Dizziness [Recovering/Resolving]
  - Pruritus [Recovering/Resolving]
  - Dyspnoea [Recovering/Resolving]
  - Vomiting [Recovering/Resolving]

NARRATIVE: CASE EVENT DATE: 20190411
